FAERS Safety Report 18819835 (Version 1)
Quarter: 2021Q1

REPORT INFORMATION
  Report Type: Spontaneous
  Country: US (occurrence: US)
  Receive Date: 20210202
  Receipt Date: 20210202
  Transmission Date: 20210419
  Serious: Yes (Other)
  Sender: FDA-Public Use
  Company Number: US-AMGEN-USASP2018026818

PATIENT
  Age: 5 Month
  Sex: Female

DRUGS (2)
  1. ENBREL [Suspect]
     Active Substance: ETANERCEPT
     Indication: MATERNAL EXPOSURE DURING BREAST FEEDING
     Dosage: 50 MG, QWK
     Route: 063
  2. CLINDAMYCIN. [Concomitant]
     Active Substance: CLINDAMYCIN
     Indication: MATERNAL EXPOSURE DURING BREAST FEEDING
     Dosage: UNK
     Route: 063
     Dates: start: 201802

REACTIONS (2)
  - Exposure via breast milk [Unknown]
  - Enterocolitis [Not Recovered/Not Resolved]

NARRATIVE: CASE EVENT DATE: 201803
